FAERS Safety Report 9249002 (Version 1)
Quarter: 2013Q1

REPORT INFORMATION
  Report Type: Spontaneous
  Country: US (occurrence: None)
  Receive Date: 20130305
  Receipt Date: 20130305
  Transmission Date: 20140127
  Serious: Yes (Hospitalization)
  Sender: FDA-Public Use
  Company Number: 163-21880-12100297

PATIENT
  Age: 69 Year
  Sex: Female
  Weight: 154.22 kg

DRUGS (5)
  1. REVLIMID [Suspect]
     Indication: PLASMA CELL MYELOMA
     Route: 048
     Dates: start: 20111216, end: 20120914
  2. BENICAR (OLMESARTAN MEDOXOMIL) [Concomitant]
  3. BYSTOLIC (NEBIVOLOLHYDROCHLORIDE) [Concomitant]
  4. SPIRONOLACTONE (SPIRONOLACTONE) [Concomitant]
  5. TORSEMIDE [Suspect]

REACTIONS (1)
  - Full blood count decreased [None]
